FAERS Safety Report 25468103 (Version 2)
Quarter: 2025Q3

REPORT INFORMATION
  Report Type: Spontaneous
  Country: EU (occurrence: EU)
  Receive Date: 20250623
  Receipt Date: 20250723
  Transmission Date: 20251020
  Serious: Yes (Other)
  Sender: SANOFI AVENTIS
  Company Number: EU-SA-2025SA176240

PATIENT
  Age: 52 Year
  Sex: Female

DRUGS (6)
  1. DUPIXENT [Suspect]
     Active Substance: DUPILUMAB
     Indication: Dermatitis atopic
     Route: 058
     Dates: start: 202009, end: 202009
  2. DUPIXENT [Suspect]
     Active Substance: DUPILUMAB
     Dosage: 300 MG, QOW
     Route: 058
     Dates: start: 2020, end: 2021
  3. DUPIXENT [Suspect]
     Active Substance: DUPILUMAB
     Route: 058
  4. DUPIXENT [Suspect]
     Active Substance: DUPILUMAB
     Route: 058
  5. BARICITINIB [Concomitant]
     Active Substance: BARICITINIB
  6. TRALOKINUMAB [Concomitant]
     Active Substance: TRALOKINUMAB

REACTIONS (3)
  - Ovarian cancer [Unknown]
  - Conjunctivitis [Unknown]
  - Therapeutic response decreased [Unknown]

NARRATIVE: CASE EVENT DATE: 20250101
